FAERS Safety Report 9744404 (Version 2)
Quarter: 2013Q4

REPORT INFORMATION
  Report Type: Spontaneous
  Country: IT (occurrence: IT)
  Receive Date: 20131210
  Receipt Date: 20131223
  Transmission Date: 20140711
  Serious: Yes (Other)
  Sender: FDA-Public Use
  Company Number: IT-TEVA-448712ISR

PATIENT
  Age: 34 Year
  Sex: Female

DRUGS (2)
  1. CISPLATIN [Suspect]
     Indication: LUNG NEOPLASM MALIGNANT
     Dosage: 120 MG CYCLICAL
     Route: 042
     Dates: start: 20131106, end: 20131112
  2. ALIMTA - 100 MG POWDER FOR CONCENTRATE FOR SOLUTION FOR INFUSION [Suspect]
     Indication: LUNG NEOPLASM MALIGNANT
     Dosage: 370 MG CYCLICAL. POWDER FOR CONCENTRATE FOR SOLUTION FOR INFUSION
     Route: 042
     Dates: start: 20131106, end: 20131112

REACTIONS (1)
  - Constipation [Recovering/Resolving]
